FAERS Safety Report 6491176-3 (Version None)
Quarter: 2009Q4

REPORT INFORMATION
  Report Type: 
  Country: None (occurrence: None)
  Receive Date: 20091125
  Receipt Date: 20090527
  Transmission Date: 20100525
  Serious: Yes (Hospitalization)
  Sender: FDA-Public Use
  Company Number: 2009BH009195

PATIENT
  Age: 61 Year
  Sex: Female
  Weight: 86.637 kg

DRUGS (8)
  1. DIANEAL [Suspect]
     Indication: PERITONEAL DIALYSIS
     Dosage: 8 L; EVERY DAY; IP
     Route: 033
     Dates: start: 20061030
  2. HECTOROL [Concomitant]
  3. SENSIPAR [Concomitant]
  4. NEPHRO-VITE RX [Concomitant]
  5. NORVASC [Concomitant]
  6. TOPROL-XL [Concomitant]
  7. EPOGEN [Concomitant]
  8. IRON [Concomitant]

REACTIONS (2)
  - PERITONITIS [None]
  - PYREXIA [None]
